FAERS Safety Report 20952557 (Version 1)
Quarter: 2022Q2

REPORT INFORMATION
  Report Type: Spontaneous
  Country: SE (occurrence: None)
  Receive Date: 20220613
  Receipt Date: 20220613
  Transmission Date: 20220721
  Serious: Yes (Other)
  Sender: FDA-Public Use
  Company Number: 2022A169952

PATIENT
  Age: 14070 Day
  Sex: Male

DRUGS (13)
  1. FASENRA [Suspect]
     Active Substance: BENRALIZUMAB
     Indication: Asthma
     Route: 058
     Dates: start: 20211207
  2. OXIS [Suspect]
     Active Substance: FORMOTEROL FUMARATE
     Route: 065
  3. BRICANYL [Suspect]
     Active Substance: TERBUTALINE SULFATE
     Route: 065
  4. ROFLUMILAST [Suspect]
     Active Substance: ROFLUMILAST
     Route: 065
  5. CALCIUM\CHOLECALCIFEROL [Concomitant]
     Active Substance: CALCIUM\CHOLECALCIFEROL
     Indication: Osteopenia
     Dosage: 500 MG/ 800 IE
     Route: 048
  6. T PREDNISOLONE [Concomitant]
     Indication: Asthma
     Dosage: 7.5 MG
     Route: 048
  7. ALDENDRONAT [Concomitant]
     Indication: Asthma
     Dosage: 70 MG
     Route: 048
     Dates: start: 20220421
  8. DYMISTA [Concomitant]
     Active Substance: AZELASTINE HYDROCHLORIDE\FLUTICASONE PROPIONATE
     Route: 065
     Dates: start: 20211010
  9. T RINEXIN [Concomitant]
     Dosage: 50MG
     Route: 065
  10. INNOVAIR [Concomitant]
     Active Substance: BECLOMETHASONE DIPROPIONATE\FORMOTEROL
     Dosage: 100/6
     Route: 065
  11. T MONTELUKAST [Concomitant]
     Dosage: 10MG
     Route: 065
  12. T DESLORATADIN [Concomitant]
  13. ALVESCO [Concomitant]
     Active Substance: CICLESONIDE

REACTIONS (2)
  - Eye swelling [Unknown]
  - Glassy eyes [Unknown]

NARRATIVE: CASE EVENT DATE: 20220310
